FAERS Safety Report 10197921 (Version 2)
Quarter: 2014Q2

REPORT INFORMATION
  Report Type: Spontaneous
  Country: US (occurrence: US)
  Receive Date: 20140527
  Receipt Date: 20140527
  Transmission Date: 20141212
  Serious: Yes (Other)
  Sender: FDA-Public Use
  Company Number: US-BANPHARM-20142700

PATIENT
  Age: 56 Year
  Sex: Female

DRUGS (3)
  1. IBUPROFEN UNKNOWN PRODUCT [Suspect]
     Dosage: PRN,
  2. HYDROXYCHLOROQUINE [Suspect]
     Indication: RHEUMATOID ARTHRITIS
     Dosage: 400 MG, QD,
  3. NABUMETONE [Suspect]

REACTIONS (5)
  - Drug interaction [Unknown]
  - Retinal toxicity [Unknown]
  - Maculopathy [Unknown]
  - Impaired driving ability [Unknown]
  - Visual acuity reduced [Unknown]
